FAERS Safety Report 9830043 (Version 2)
Quarter: 2014Q2

REPORT INFORMATION
  Report Type: Spontaneous
  Country: US (occurrence: US)
  Receive Date: 20140120
  Receipt Date: 20140404
  Transmission Date: 20141212
  Serious: Yes (Life-Threatening, Hospitalization, Other)
  Sender: FDA-Public Use
  Company Number: US-BAYER-2014-005384

PATIENT
  Age: 29 Year
  Sex: Female
  Weight: 104.31 kg

DRUGS (2)
  1. MIRENA [Suspect]
     Indication: CONTRACEPTION
     Dosage: 20 MCG/24HR, CONT
     Route: 015
     Dates: start: 20061106, end: 20120112
  2. NEURONTIN [Concomitant]
     Indication: MIGRAINE
     Dosage: UNK
     Dates: start: 20110101

REACTIONS (14)
  - Uterine perforation [None]
  - Injury [None]
  - Device misuse [None]
  - Abdominal pain [None]
  - General physical health deterioration [None]
  - Anxiety [None]
  - Anhedonia [None]
  - Infection [None]
  - Emotional distress [None]
  - Medical device discomfort [None]
  - Device failure [None]
  - Medical device pain [None]
  - Procedural pain [None]
  - Mental disorder [None]
